FAERS Safety Report 24671075 (Version 4)
Quarter: 2024Q4

REPORT INFORMATION
  Report Type: Report from Study
  Country: NL (occurrence: NL)
  Receive Date: 20241127
  Receipt Date: 20241227
  Transmission Date: 20250114
  Serious: Yes (Hospitalization, Other)
  Sender: NOVARTIS
  Company Number: NL-002147023-NVSC2024NL226619

PATIENT
  Age: 73 Year
  Sex: Male

DRUGS (3)
  1. OCTREOTIDE ACETATE [Suspect]
     Active Substance: OCTREOTIDE ACETATE
     Indication: Angiodysplasia
     Dosage: 1 DOSAGE FORM, Q4W (1.00 X PER 4 WEKEN)
     Route: 030
     Dates: start: 20240801
  2. OCTREOTIDE ACETATE [Suspect]
     Active Substance: OCTREOTIDE ACETATE
     Dosage: 1 DOSAGE FORM, Q4W (1.00 X PER 4 WEKEN)
     Route: 030
     Dates: start: 20241024
  3. OCTREOTIDE ACETATE [Suspect]
     Active Substance: OCTREOTIDE ACETATE
     Dosage: 1 DOSAGE FORM, Q4W (1.00 X PER 4 WEKEN)
     Route: 030
     Dates: start: 20241122

REACTIONS (5)
  - Haemoglobin decreased [Unknown]
  - Oesophageal haemorrhage [Unknown]
  - Discoloured vomit [Unknown]
  - Faeces discoloured [Unknown]
  - Off label use [Unknown]

NARRATIVE: CASE EVENT DATE: 20240101
